FAERS Safety Report 5385133-8 (Version None)
Quarter: 2007Q3

REPORT INFORMATION
  Report Type: 
  Country: None (occurrence: None)
  Receive Date: 20070709
  Receipt Date: 20070628
  Transmission Date: 20080115
  Serious: Yes (Death, Hospitalization, Other)
  Sender: FDA-Public Use
  Company Number: 230001M07BRA

PATIENT
  Sex: Female

DRUGS (3)
  1. REBIF [Suspect]
     Dosage: ONCE
     Dates: start: 20070606
  2. REBIF [Suspect]
     Dosage: ONCE
     Dates: start: 20070608
  3. ACETAMINOPHEN [Concomitant]

REACTIONS (5)
  - INFECTION [None]
  - SEPSIS [None]
  - SKIN INFECTION [None]
  - STEVENS-JOHNSON SYNDROME [None]
  - TOXIC EPIDERMAL NECROLYSIS [None]
